FAERS Safety Report 23295152 (Version 1)
Quarter: 2023Q4

REPORT INFORMATION
  Report Type: Spontaneous
  Country: GB (occurrence: GB)
  Receive Date: 20231213
  Receipt Date: 20231213
  Transmission Date: 20240110
  Serious: Yes (Other)
  Sender: FDA-Public Use
  Company Number: None

PATIENT
  Age: 29 Year
  Sex: Female
  Weight: 71 kg

DRUGS (4)
  1. AMOXICILLIN [Suspect]
     Active Substance: AMOXICILLIN
     Indication: Product used for unknown indication
     Route: 048
     Dates: start: 20231114
  2. CLARITHROMYCIN [Concomitant]
     Active Substance: CLARITHROMYCIN
     Indication: Infection
     Dosage: TAKE ONE TABLET TWICE A DAY FOR 5 DAYS, TO TREAT INFECTION
     Route: 048
     Dates: start: 20231117
  3. DOXYCYCLINE [Concomitant]
     Active Substance: DOXYCYCLINE
     Indication: Product used for unknown indication
     Dosage: TWO NOW THEN ONE DAILY
     Dates: start: 20231116
  4. FLUCLOXACILLIN. [Concomitant]
     Indication: Ill-defined disorder
     Dosage: TAKE ONE CAPSULE FOUR TIMES A DAY FOR 7 DAYS
     Route: 048
     Dates: start: 20231016, end: 20231023

REACTIONS (2)
  - Abdominal pain upper [Unknown]
  - Nausea [Recovered/Resolved]
